FAERS Safety Report 4493436-4 (Version None)
Quarter: 2004Q4

REPORT INFORMATION
  Report Type: 
  Country: None (occurrence: None)
  Receive Date: 20041102
  Receipt Date: 20041027
  Transmission Date: 20050328
  Serious: Yes (Life-Threatening, Hospitalization)
  Sender: FDA-Public Use
  Company Number: A0531567A

PATIENT
  Sex: Female

DRUGS (1)
  1. VALTREX [Suspect]
     Indication: HERPES VIRUS INFECTION
     Dosage: 500 MG / THREE TIMES PER DAY / ORAL
     Route: 048

REACTIONS (3)
  - CONDITION AGGRAVATED [None]
  - HERPES SIMPLEX [None]
  - HERPES VIRUS INFECTION [None]
